FAERS Safety Report 26037038 (Version 2)
Quarter: 2025Q4

REPORT INFORMATION
  Report Type: Report from Study
  Country: US (occurrence: US)
  Receive Date: 20251112
  Receipt Date: 20251125
  Transmission Date: 20260118
  Serious: No
  Sender: MALLINCKRODT
  Company Number: US-MALLINCKRODT-MNK202506897

PATIENT
  Age: 64 Year
  Sex: Female

DRUGS (9)
  1. CORTICOTROPIN [Suspect]
     Active Substance: CORTICOTROPIN
     Indication: Polymyositis
     Route: 058
  2. FOLIC ACID [Concomitant]
     Active Substance: FOLIC ACID
     Dosage: UNKNOWN
  3. GABAPENTIN [Concomitant]
     Active Substance: GABAPENTIN
     Dosage: UNKNOWN
  4. HYDROXYCHLOROQUINE SULFATE [Concomitant]
     Active Substance: HYDROXYCHLOROQUINE SULFATE
     Dosage: UNKNOWN
  5. METOPROLOL TARTRATE [Concomitant]
     Active Substance: METOPROLOL TARTRATE
     Dosage: UNKNOWN
  6. FAMOTIDINE [Concomitant]
     Active Substance: FAMOTIDINE
     Dosage: UNKNOWN
  7. VITAMIN D [Concomitant]
     Active Substance: VITAMIN D NOS
     Dosage: UNKNOWN
  8. PREDNISONE [Concomitant]
     Active Substance: PREDNISONE
     Dosage: UNKNOWN
  9. MONTELUKAST SODIUM [Concomitant]
     Active Substance: MONTELUKAST SODIUM
     Dosage: UNKNOWN

REACTIONS (3)
  - Vitamin B12 decreased [Unknown]
  - Adverse event [Unknown]
  - Product dose omission issue [Unknown]
